FAERS Safety Report 23525746 (Version 2)
Quarter: 2024Q1

REPORT INFORMATION
  Report Type: Spontaneous
  Country: DE (occurrence: DE)
  Receive Date: 20240215
  Receipt Date: 20240220
  Transmission Date: 20240410
  Serious: Yes (Other)
  Sender: FDA-Public Use
  Company Number: DE-MLMSERVICE-20240201-4807160-1

PATIENT
  Age: 6 Month
  Sex: Female

DRUGS (3)
  1. CORTIZONE 10 EASY RELIEF [Suspect]
     Active Substance: HYDROCORTISONE
     Indication: Adrenal insufficiency
     Dosage: AFTER DAY 5
     Route: 048
  2. CORTIZONE 10 EASY RELIEF [Suspect]
     Active Substance: HYDROCORTISONE
     Dosage: LOADING DOSE
  3. CORTIZONE 10 EASY RELIEF [Suspect]
     Active Substance: HYDROCORTISONE
     Dosage: PARENTERAL HYDROCORTISONE SUPPLEMENTATION

REACTIONS (3)
  - Bradycardia [Unknown]
  - Ventricular extrasystoles [Unknown]
  - Hypertension [Recovered/Resolved]
